FAERS Safety Report 5668611-3 (Version None)
Quarter: 2008Q1

REPORT INFORMATION
  Report Type: 
  Country: None (occurrence: None)
  Receive Date: 20080315
  Receipt Date: 20080229
  Transmission Date: 20080703
  Serious: No
  Sender: FDA-Public Use
  Company Number: US-ABBOTT-08P-163-0440625-00

PATIENT
  Sex: Female
  Weight: 66.284 kg

DRUGS (3)
  1. HUMIRA [Suspect]
     Indication: CROHN'S DISEASE
     Route: 058
     Dates: start: 20071005, end: 20080225
  2. CARBAMAZEPINE [Concomitant]
     Indication: GASTROOESOPHAGEAL REFLUX DISEASE
     Route: 048
  3. OMEPRAZOLE [Concomitant]
     Indication: GASTROOESOPHAGEAL REFLUX DISEASE
     Route: 048

REACTIONS (5)
  - AMNESIA [None]
  - HEMIPARESIS [None]
  - LOSS OF CONSCIOUSNESS [None]
  - TREMOR [None]
  - UPPER RESPIRATORY TRACT INFECTION [None]
